FAERS Safety Report 8985528 (Version 1)
Quarter: 2012Q4

REPORT INFORMATION
  Report Type: 
  Country: NL (occurrence: NL)
  Receive Date: 20121226
  Receipt Date: 20121226
  Transmission Date: 20130627
  Serious: Yes (Hospitalization)
  Sender: FDA-Public Use
  Company Number: NL-ASTRAZENECA-2012SE93728

PATIENT
  Age: 31 Year
  Sex: Female

DRUGS (1)
  1. EMLA CREME [Suspect]
     Indication: PAIN PROPHYLAXIS
     Dosage: 50MG/G, 90G ONCE/SINGLE ADMINISTRATION
     Route: 003
     Dates: start: 201201, end: 201201

REACTIONS (2)
  - Overdose [Recovered/Resolved]
  - Methaemoglobinaemia [Recovered/Resolved]
